FAERS Safety Report 12748788 (Version 3)
Quarter: 2016Q4

REPORT INFORMATION
  Report Type: Spontaneous
  Country: US (occurrence: US)
  Receive Date: 20160915
  Receipt Date: 20161027
  Transmission Date: 20170207
  Serious: Yes (Hospitalization, Other)
  Sender: FDA-Public Use
  Company Number: US-CELGENEUS-USA-2016091492

PATIENT
  Sex: Female
  Weight: 76.73 kg

DRUGS (2)
  1. REVLIMID [Suspect]
     Active Substance: LENALIDOMIDE
     Indication: GASTRIC ANTRAL VASCULAR ECTASIA
     Dosage: 10 MILLIGRAM
     Route: 048
     Dates: start: 20160629
  2. IRON [Concomitant]
     Active Substance: IRON
     Indication: PRODUCT USED FOR UNKNOWN INDICATION
     Dosage: 325(65)
     Route: 048

REACTIONS (3)
  - Fatigue [Unknown]
  - Ventricular tachycardia [Unknown]
  - Blood pressure increased [Unknown]

NARRATIVE: CASE EVENT DATE: 2016
